FAERS Safety Report 24420396 (Version 2)
Quarter: 2025Q1

REPORT INFORMATION
  Report Type: Spontaneous
  Country: US (occurrence: US)
  Receive Date: 20241010
  Receipt Date: 20250228
  Transmission Date: 20250408
  Serious: Yes (Hospitalization, Other)
  Sender: NOVO NORDISK
  Company Number: US-NOVOPROD-1293434

PATIENT
  Age: 39 Year
  Sex: Female
  Weight: 113.3 kg

DRUGS (16)
  1. OZEMPIC [Suspect]
     Active Substance: SEMAGLUTIDE
     Indication: Obesity
     Dosage: 2 MG, QW
     Route: 058
     Dates: start: 20220221, end: 20220824
  2. LIPITOR [Concomitant]
     Active Substance: ATORVASTATIN CALCIUM
     Indication: Blood cholesterol increased
  3. LIPITOR [Concomitant]
     Active Substance: ATORVASTATIN CALCIUM
     Indication: Blood triglycerides increased
  4. LEVOTHYROXINE [Concomitant]
     Active Substance: LEVOTHYROXINE
     Indication: Hypothyroidism
     Dates: start: 20110101
  5. ROSUVASTATIN [Concomitant]
     Active Substance: ROSUVASTATIN
     Indication: Blood cholesterol increased
     Dates: start: 20190101
  6. PHENTERMINE [Concomitant]
     Active Substance: PHENTERMINE
     Indication: Weight control
     Dates: start: 20190101, end: 20231231
  7. TOPIRAMATE [Concomitant]
     Active Substance: TOPIRAMATE
     Indication: Weight control
     Dates: start: 20190101, end: 20231231
  8. TIZANIDINE [Concomitant]
     Active Substance: TIZANIDINE
     Indication: Relaxation therapy
     Dates: start: 20200101, end: 20221231
  9. GABAPENTIN [Concomitant]
     Active Substance: GABAPENTIN
     Indication: Neuralgia
     Dates: start: 20220101, end: 20221231
  10. CALCIUM [Concomitant]
     Active Substance: CALCIUM
     Indication: Hair disorder
     Dates: start: 20080101
  11. CALCIUM [Concomitant]
     Active Substance: CALCIUM
     Indication: Nail disorder
  12. BIOTIN [Concomitant]
     Active Substance: BIOTIN
     Indication: Hair injury
     Dates: start: 20080101
  13. MAGNESIUM [Concomitant]
     Active Substance: MAGNESIUM
     Indication: Ill-defined disorder
     Dates: start: 20210101
  14. VITAMIN D3 [Concomitant]
     Active Substance: CHOLECALCIFEROL
     Indication: Vitamin D deficiency
     Dates: start: 20210101
  15. IRON [Concomitant]
     Active Substance: IRON
     Indication: Iron deficiency
     Dates: start: 20080101
  16. EXCEDRIN [Concomitant]
     Active Substance: ACETAMINOPHEN\ASPIRIN\CAFFEINE
     Indication: Analgesic therapy
     Dates: start: 20200101

REACTIONS (4)
  - Intestinal obstruction [Recovered/Resolved]
  - Septic shock [Recovered/Resolved]
  - Diarrhoea [Recovered/Resolved]
  - Off label use [Unknown]

NARRATIVE: CASE EVENT DATE: 20220221
